FAERS Safety Report 8563923-8 (Version None)
Quarter: 2012Q3

REPORT INFORMATION
  Report Type: 
  Country: None (occurrence: None)
  Receive Date: 20120803
  Receipt Date: 20120724
  Transmission Date: 20120928
  Serious: Yes (Hospitalization)
  Sender: FDA-Public Use
  Company Number: US-BAYER-2011-040527

PATIENT
  Age: 29 Year
  Sex: Female
  Weight: 68.027 kg

DRUGS (3)
  1. AMOXICILINA CLAV [Concomitant]
     Dosage: 500 MG, 14 DISPENSED FOR 7 DAYS
     Route: 048
     Dates: start: 20070412
  2. YAZ [Suspect]
     Dosage: UNK
     Dates: start: 20070129, end: 20070624
  3. PRENATAL VITAMINS [VIT C,VIT H,MIN NOS,VIT PP,RETINOL,VIT E,VIT B [Concomitant]
     Dosage: 1 TABLET DAILY
     Route: 048

REACTIONS (12)
  - PAIN [None]
  - EMOTIONAL DISTRESS [None]
  - PLEURITIC PAIN [None]
  - MUSCULOSKELETAL CHEST PAIN [None]
  - ANXIETY [None]
  - INSOMNIA [None]
  - DEPRESSION [None]
  - BACK PAIN [None]
  - GENERAL PHYSICAL HEALTH DETERIORATION [None]
  - PULMONARY EMBOLISM [None]
  - DYSPNOEA [None]
  - FEAR OF DEATH [None]
